FAERS Safety Report 22600494 (Version 1)
Quarter: 2023Q2

REPORT INFORMATION
  Report Type: Other
  Country: IN (occurrence: None)
  Receive Date: 20230614
  Receipt Date: 20230614
  Transmission Date: 20230721
  Serious: Yes (Other)
  Sender: FDA-Public Use
  Company Number: IN-ROCHE-3365269

PATIENT
  Age: 42 Year
  Sex: Female

DRUGS (1)
  1. PERJETA [Suspect]
     Active Substance: PERTUZUMAB
     Indication: Lung neoplasm malignant
     Route: 042
     Dates: start: 20221201

REACTIONS (1)
  - Carcinoembryonic antigen increased [Unknown]
